FAERS Safety Report 10795071 (Version 1)
Quarter: 2015Q1

REPORT INFORMATION
  Report Type: Spontaneous
  Country: US (occurrence: US)
  Receive Date: 20150214
  Receipt Date: 20150214
  Transmission Date: 20150721
  Serious: No
  Sender: FDA-Public Use
  Company Number: US-GLAXOSMITHKLINE-A1086317A

PATIENT

DRUGS (13)
  1. TRAZODONE [Concomitant]
     Active Substance: TRAZODONE HYDROCHLORIDE
  2. LISINOPRIL. [Concomitant]
     Active Substance: LISINOPRIL
  3. HCTZ [Concomitant]
     Active Substance: HYDROCHLOROTHIAZIDE
  4. ATIVAN [Concomitant]
     Active Substance: LORAZEPAM
  5. GABAPENTIN. [Concomitant]
     Active Substance: GABAPENTIN
  6. LEVETIRACETAM. [Concomitant]
     Active Substance: LEVETIRACETAM
  7. VENTOLIN [Suspect]
     Active Substance: ALBUTEROL SULFATE
     Dates: start: 2012
  8. BUMETANIDE. [Concomitant]
     Active Substance: BUMETANIDE
  9. NOVOLOG [Concomitant]
     Active Substance: INSULIN ASPART
  10. GLUCAGON. [Concomitant]
     Active Substance: GLUCAGON
  11. VENTOLIN [Suspect]
     Active Substance: ALBUTEROL SULFATE
     Indication: CHRONIC OBSTRUCTIVE PULMONARY DISEASE
     Route: 055
     Dates: start: 2012
  12. SIMVASTATIN. [Concomitant]
     Active Substance: SIMVASTATIN
  13. AMITRIPTYLINE [Concomitant]
     Active Substance: AMITRIPTYLINE

REACTIONS (5)
  - Blood glucose increased [Unknown]
  - Atrioventricular block [Not Recovered/Not Resolved]
  - Nerve compression [Unknown]
  - Malaise [Unknown]
  - Neuropathy peripheral [Unknown]
